FAERS Safety Report 25561849 (Version 1)
Quarter: 2025Q3

REPORT INFORMATION
  Report Type: Spontaneous
  Country: GB (occurrence: GB)
  Receive Date: 20250716
  Receipt Date: 20250716
  Transmission Date: 20251021
  Serious: Yes (Other)
  Sender: SAMSUNG BIOEPIS
  Company Number: GB-SAMSUNG BIOEPIS-SB-2025-23839

PATIENT
  Age: 73 Year
  Sex: Male

DRUGS (1)
  1. INFLIXIMAB [Suspect]
     Active Substance: INFLIXIMAB
     Indication: Crohn^s disease

REACTIONS (6)
  - Liver abscess [Recovered/Resolved]
  - Mesenteric vein thrombosis [Recovered/Resolved]
  - Amoebic colitis [Recovered/Resolved]
  - Condition aggravated [Recovered/Resolved]
  - Treatment failure [Unknown]
  - Unintentional use for unapproved indication [Unknown]
